FAERS Safety Report 8594992-7 (Version None)
Quarter: 2012Q3

REPORT INFORMATION
  Report Type: 
  Country: None (occurrence: None)
  Receive Date: 20120815
  Receipt Date: 20120809
  Transmission Date: 20120928
  Serious: Yes (Other)
  Sender: FDA-Public Use
  Company Number: PHHY2012BR069724

PATIENT
  Age: 69 Year
  Sex: Female

DRUGS (2)
  1. AMLODOPINE BESYLATE AND VALSARTAN [Suspect]
     Indication: HYPERTENSION
     Dosage: UNK UKN, UNK
  2. DIOVAN HCT [Suspect]
     Indication: BLOOD PRESSURE
     Dosage: 1 DF, (160 MG VASL AND 12.5 MG HCT) DAILY, IN THE MORNING

REACTIONS (4)
  - HYPERTENSION [None]
  - DIARRHOEA [None]
  - DIABETES MELLITUS [None]
  - OEDEMA PERIPHERAL [None]
